FAERS Safety Report 11291117 (Version 1)
Quarter: 2015Q3

REPORT INFORMATION
  Report Type: Spontaneous
  Country: CH (occurrence: CH)
  Receive Date: 20150722
  Receipt Date: 20150722
  Transmission Date: 20151125
  Serious: Yes (Life-Threatening, Hospitalization)
  Sender: FDA-Public Use
  Company Number: CH-ORION CORPORATION ORION PHARMA-TREX2015-0488

PATIENT
  Age: 51 Year
  Sex: Female
  Weight: 88 kg

DRUGS (13)
  1. CIPROFLOXACIN. [Interacting]
     Active Substance: CIPROFLOXACIN
     Route: 048
     Dates: start: 20150608, end: 20150616
  2. CIPROFLOXACIN. [Interacting]
     Active Substance: CIPROFLOXACIN
     Route: 048
     Dates: start: 20150615, end: 20150620
  3. FLUCONAZOL [Concomitant]
     Active Substance: FLUCONAZOLE
     Route: 048
     Dates: start: 20150622
  4. PROTOPIC [Concomitant]
     Active Substance: TACROLIMUS
     Indication: SYSTEMIC LUPUS ERYTHEMATOSUS
     Route: 061
  5. HALDOL [Concomitant]
     Active Substance: HALOPERIDOL
     Route: 048
  6. QUETIAPIN [Concomitant]
     Active Substance: QUETIAPINE
     Indication: SCHIZOPHRENIA
     Route: 048
  7. LAMOTRIGIN [Concomitant]
     Active Substance: LAMOTRIGINE
     Indication: SCHIZOPHRENIA
     Route: 048
  8. SANGEROL [Concomitant]
     Route: 049
     Dates: end: 20150622
  9. CRESTOR [Concomitant]
     Active Substance: ROSUVASTATIN CALCIUM
     Route: 048
  10. DERMOVATE [Concomitant]
     Active Substance: CLOBETASOL
     Indication: SYSTEMIC LUPUS ERYTHEMATOSUS
     Route: 061
  11. METHOTREXATE [Suspect]
     Active Substance: METHOTREXATE
     Indication: CUTANEOUS LUPUS ERYTHEMATOSUS
     Dosage: STRENGTH: 10 MG
     Route: 048
     Dates: start: 20150523, end: 20150623
  12. FLUCONAZOL [Concomitant]
     Active Substance: FLUCONAZOLE
     Indication: STOMATITIS
     Route: 048
     Dates: start: 20150608, end: 20150616
  13. FOLSAURE [Concomitant]
     Active Substance: FOLIC ACID
     Route: 048

REACTIONS (14)
  - Accidental overdose [Recovering/Resolving]
  - Hypotonia [Recovering/Resolving]
  - Agranulocytosis [Recovering/Resolving]
  - Pneumonia [Recovering/Resolving]
  - Gingivitis [Recovering/Resolving]
  - Stomatitis [Recovering/Resolving]
  - Staphylococcal bacteraemia [Recovering/Resolving]
  - Lymphadenopathy [Recovering/Resolving]
  - Skin lesion [Recovering/Resolving]
  - Drug interaction [Recovering/Resolving]
  - Inappropriate schedule of drug administration [Recovering/Resolving]
  - Macule [Recovering/Resolving]
  - Cheilitis [Recovering/Resolving]
  - Pancytopenia [Recovering/Resolving]

NARRATIVE: CASE EVENT DATE: 20150523
